FAERS Safety Report 17800911 (Version 1)
Quarter: 2020Q2

REPORT INFORMATION
  Report Type: Spontaneous
  Country: IT (occurrence: IT)
  Receive Date: 20200519
  Receipt Date: 20200519
  Transmission Date: 20200714
  Serious: Yes (Other)
  Sender: FDA-Public Use
  Company Number: IT-AMGEN-ITASP2020076780

PATIENT

DRUGS (3)
  1. EOSINE [Concomitant]
  2. ADALIMUMAB [Suspect]
     Active Substance: ADALIMUMAB
     Indication: HIDRADENITIS
     Dosage: UNK
     Route: 065
  3. SILVER SULFADIAZINE. [Concomitant]
     Active Substance: SILVER SULFADIAZINE

REACTIONS (2)
  - Hidradenitis [Recovered/Resolved]
  - Treatment failure [Unknown]
